FAERS Safety Report 12550413 (Version 1)
Quarter: 2016Q3

REPORT INFORMATION
  Report Type: Spontaneous
  Country: US (occurrence: US)
  Receive Date: 20160712
  Receipt Date: 20160712
  Transmission Date: 20161109
  Serious: No
  Sender: FDA-Public Use
  Company Number: US-CELGENEUS-USA-2016072026

PATIENT
  Sex: Female

DRUGS (2)
  1. OTEZLA [Suspect]
     Active Substance: APREMILAST
     Indication: PSORIASIS
     Route: 048
     Dates: start: 20160404
  2. OTEZLA [Suspect]
     Active Substance: APREMILAST
     Route: 048
     Dates: start: 2016

REACTIONS (1)
  - Gastrointestinal disorder [Unknown]
